FAERS Safety Report 10193029 (Version 2)
Quarter: 2015Q1

REPORT INFORMATION
  Report Type: Report from Study
  Country: CA (occurrence: CA)
  Receive Date: 20140524
  Receipt Date: 20150224
  Transmission Date: 20150720
  Serious: Yes (Hospitalization, Other)
  Sender: FDA-Public Use
  Company Number: CA-AMGEN-CANSP2014036756

PATIENT
  Age: 70 Year
  Sex: Female

DRUGS (5)
  1. VITAMIN D                          /00107901/ [Concomitant]
     Active Substance: ERGOCALCIFEROL
  2. METOPROLOL [Concomitant]
     Active Substance: METOPROLOL
     Indication: PALPITATIONS
     Dosage: UNK
  3. CALCIUM [Concomitant]
     Active Substance: CALCIUM
  4. PROLIA [Suspect]
     Active Substance: DENOSUMAB
     Indication: OSTEOPOROSIS POSTMENOPAUSAL
     Dosage: 60 MG, UNK
     Route: 065
     Dates: start: 20121107
  5. PLAVIX [Concomitant]
     Active Substance: CLOPIDOGREL BISULFATE
     Dosage: UNK

REACTIONS (16)
  - Rib fracture [Unknown]
  - Sciatica [Unknown]
  - Skin infection [Unknown]
  - Device related infection [Unknown]
  - Cellulitis [Unknown]
  - Arthropathy [Unknown]
  - Malaise [Unknown]
  - Fall [Unknown]
  - Osteomyelitis [Unknown]
  - Impaired healing [Unknown]
  - Arrhythmia [Unknown]
  - Infection [Unknown]
  - Sepsis [Unknown]
  - Bone pain [Unknown]
  - Mobility decreased [Unknown]
  - Lower respiratory tract infection [Unknown]

NARRATIVE: CASE EVENT DATE: 2013
